FAERS Safety Report 17964847 (Version 4)
Quarter: 2021Q1

REPORT INFORMATION
  Report Type: Spontaneous
  Country: US (occurrence: US)
  Receive Date: 20200630
  Receipt Date: 20210316
  Transmission Date: 20210419
  Serious: Yes (Other)
  Sender: FDA-Public Use
  Company Number: US-PFIZER INC-2020245317

PATIENT
  Age: 74 Year
  Sex: Female
  Weight: 51.26 kg

DRUGS (3)
  1. IBRANCE [Suspect]
     Active Substance: PALBOCICLIB
     Indication: BREAST CANCER FEMALE
     Dosage: 125 MG, 1X/DAY
     Route: 048
     Dates: start: 202003
  2. IBRANCE [Suspect]
     Active Substance: PALBOCICLIB
     Dosage: 100 MG
  3. LETROZOLE. [Suspect]
     Active Substance: LETROZOLE
     Indication: BREAST CANCER FEMALE
     Dosage: 2.5 MG, DAILY
     Route: 048
     Dates: start: 202003

REACTIONS (5)
  - Second primary malignancy [Unknown]
  - Fatigue [Unknown]
  - Thrombosis [Unknown]
  - Colon cancer [Unknown]
  - Chest discomfort [Unknown]

NARRATIVE: CASE EVENT DATE: 202005
